FAERS Safety Report 15134828 (Version 1)
Quarter: 2018Q3

REPORT INFORMATION
  Report Type: Spontaneous
  Country: US (occurrence: US)
  Receive Date: 20180615
  Receipt Date: 20180615
  Transmission Date: 20181010
  Serious: Yes (Disabling)
  Sender: FDA-Public Use
  Company Number: None

PATIENT
  Age: 68 Year
  Sex: Female
  Weight: 85.5 kg

DRUGS (3)
  1. FLUTICASONE PROPIONATE NASAL SPRAY [Suspect]
     Active Substance: FLUTICASONE PROPIONATE
     Indication: RHINITIS ALLERGIC
     Dosage: ?          QUANTITY:1 SPRAY(S);?
     Route: 055
     Dates: start: 20180501, end: 20180615
  2. ASPIRIN. [Concomitant]
     Active Substance: ASPIRIN
  3. OSCAL [Concomitant]
     Active Substance: CALCIUM CARBONATE

REACTIONS (4)
  - Product use issue [None]
  - Epistaxis [None]
  - Product contamination physical [None]
  - Ear congestion [None]

NARRATIVE: CASE EVENT DATE: 20180510
